FAERS Safety Report 15246168 (Version 2)
Quarter: 2022Q1

REPORT INFORMATION
  Report Type: Spontaneous
  Country: JP (occurrence: JP)
  Receive Date: 20180806
  Receipt Date: 20220114
  Transmission Date: 20220423
  Serious: Yes (Hospitalization, Other)
  Sender: FDA-Public Use
  Company Number: JP-GLAXOSMITHKLINE-JP2018JPN135855

PATIENT
  Age: 38 Year
  Sex: Male

DRUGS (9)
  1. LAMICTAL [Suspect]
     Active Substance: LAMOTRIGINE
     Indication: Bipolar disorder
     Dosage: 4100 MG, SINGLE
     Route: 048
  2. LAMICTAL [Suspect]
     Active Substance: LAMOTRIGINE
     Indication: Intentional self-injury
  3. VENLAFAXINE HYDROCHLORIDE [Suspect]
     Active Substance: VENLAFAXINE HYDROCHLORIDE
     Indication: Intentional self-injury
     Dosage: 4200 MG, SINGLE
     Route: 048
  4. QUETIAPINE FUMARATE [Suspect]
     Active Substance: QUETIAPINE FUMARATE
     Indication: Intentional self-injury
     Dosage: 4000 MG, SINGLE
     Route: 048
  5. ASENAPINE MALEATE [Suspect]
     Active Substance: ASENAPINE MALEATE
     Indication: Intentional self-injury
     Dosage: 105 MG, SINGLE
     Route: 048
  6. LORAZEPAM [Concomitant]
     Active Substance: LORAZEPAM
     Dosage: 41 MG, SINGLE
     Route: 048
  7. ESZOPICLONE [Concomitant]
     Active Substance: ESZOPICLONE
     Dosage: 20 MG, SINGLE
     Route: 048
  8. SENNOSIDES [Concomitant]
     Active Substance: SENNOSIDES
     Dosage: 12 MG, SINGLE
     Route: 048
  9. NITRAZEPAM [Concomitant]
     Active Substance: NITRAZEPAM
     Dosage: 180 MG, SINGLE
     Route: 048

REACTIONS (16)
  - Toxicity to various agents [Unknown]
  - Altered state of consciousness [Recovering/Resolving]
  - Suicide attempt [Unknown]
  - Hyperreflexia [Unknown]
  - Blood pressure decreased [Recovering/Resolving]
  - Tonic posturing [Unknown]
  - Seizure [Unknown]
  - Depression [Unknown]
  - Electrocardiogram QT prolonged [Unknown]
  - Electrocardiogram high voltage [Unknown]
  - Defect conduction intraventricular [Unknown]
  - Tachycardia [Unknown]
  - Platelet count decreased [Unknown]
  - Mydriasis [Unknown]
  - Overdose [Unknown]
  - Intentional overdose [Unknown]
